FAERS Safety Report 25188088 (Version 1)
Quarter: 2025Q2

REPORT INFORMATION
  Report Type: Other
  Country: US (occurrence: US)
  Receive Date: 20250411
  Receipt Date: 20250411
  Transmission Date: 20250717
  Serious: Yes (Death, Other)
  Sender: ALVOGEN
  Company Number: US-ALVOGEN-2025096825

PATIENT
  Age: 57 Year
  Sex: Female

DRUGS (9)
  1. GABAPENTIN [Suspect]
     Active Substance: GABAPENTIN
     Indication: Completed suicide
     Route: 065
  2. VENLAFAXINE [Suspect]
     Active Substance: VENLAFAXINE HYDROCHLORIDE
     Indication: Suicide attempt
     Route: 065
  3. INSULIN NOS [Suspect]
     Active Substance: INSULIN NOS
     Indication: Suicide attempt
     Route: 065
  4. AMITRIPTYLINE [Suspect]
     Active Substance: AMITRIPTYLINE
     Indication: Suicide attempt
     Route: 065
  5. ARIPIPRAZOLE [Suspect]
     Active Substance: ARIPIPRAZOLE
     Indication: Suicide attempt
     Route: 065
  6. QUETIAPINE [Suspect]
     Active Substance: QUETIAPINE
     Indication: Suicide attempt
     Route: 065
  7. ROPINIROLE [Suspect]
     Active Substance: ROPINIROLE
     Indication: Suicide attempt
     Route: 065
  8. SUMATRIPTAN [Suspect]
     Active Substance: SUMATRIPTAN
     Indication: Suicide attempt
     Route: 065
  9. CYCLOBENZAPRINE [Suspect]
     Active Substance: CYCLOBENZAPRINE
     Indication: Suicide attempt
     Route: 065

REACTIONS (2)
  - Completed suicide [Fatal]
  - Incorrect route of product administration [Unknown]
